FAERS Safety Report 9200531 (Version 1)
Quarter: 2013Q1

REPORT INFORMATION
  Report Type: Spontaneous
  Country: US (occurrence: US)
  Receive Date: 20130329
  Receipt Date: 20130329
  Transmission Date: 20140127
  Serious: Yes (Other)
  Sender: FDA-Public Use
  Company Number: US-PFIZER INC-2007337822

PATIENT
  Age: 50 Year
  Sex: Male
  Weight: 95.26 kg

DRUGS (4)
  1. MOTRIN IB [Suspect]
     Indication: PAIN
     Dosage: 400 MG, AS NECESSARY
     Route: 048
     Dates: start: 2003
  2. MOTRIN IB [Suspect]
     Indication: PAIN
  3. VITAMIN B12 [Concomitant]
     Indication: ANAEMIA PROPHYLAXIS
     Route: 030
  4. VALIUM [Concomitant]
     Indication: STRESS
     Dosage: UNK
     Route: 048

REACTIONS (1)
  - Paranoia [Unknown]
